FAERS Safety Report 7964952-5 (Version None)
Quarter: 2011Q4

REPORT INFORMATION
  Report Type: 
  Country: None (occurrence: None)
  Receive Date: 20111206
  Receipt Date: 20111206
  Transmission Date: 20120403
  Serious: Yes (Hospitalization)
  Sender: FDA-Public Use
  Company Number: None

PATIENT
  Age: 68 Year
  Weight: 90.7194 kg

DRUGS (10)
  1. DEPAKOTE [Concomitant]
  2. METFORMIN HCL [Concomitant]
  3. SEROQUEL [Suspect]
  4. NAMENDA [Suspect]
  5. FENOFIBRATE [Concomitant]
  6. ZOLOFT [Suspect]
  7. THALIDOMIDE [Suspect]
     Indication: DEMENTIA ALZHEIMER'S TYPE
     Dosage: 150MG/3 PILLS OD PO
     Route: 048
     Dates: start: 20110927, end: 20111121
  8. PROPRANOLOL [Concomitant]
  9. CRESTOR [Concomitant]
  10. GLYBURIDE [Concomitant]

REACTIONS (4)
  - OESOPHAGEAL ULCER HAEMORRHAGE [None]
  - HYPOTENSION [None]
  - UPPER GASTROINTESTINAL HAEMORRHAGE [None]
  - GASTRIC ULCER HAEMORRHAGE [None]
